FAERS Safety Report 6668659-6 (Version None)
Quarter: 2010Q2

REPORT INFORMATION
  Report Type: 
  Country: None (occurrence: None)
  Receive Date: 20100406
  Receipt Date: 20100330
  Transmission Date: 20101027
  Serious: Yes (Other)
  Sender: FDA-Public Use
  Company Number: US-JNJCH-2010007846

PATIENT
  Age: 39 Year
  Sex: Male
  Weight: 93 kg

DRUGS (1)
  1. ROLAIDS TAB [Suspect]
     Indication: DYSPEPSIA
     Dosage: TEXT:2 TABLETS 3X DAY
     Route: 048

REACTIONS (6)
  - BLINDNESS [None]
  - DIARRHOEA [None]
  - EYE HAEMORRHAGE [None]
  - EYE PAIN [None]
  - NAUSEA [None]
  - PRODUCT ODOUR ABNORMAL [None]
